FAERS Safety Report 13540148 (Version 2)
Quarter: 2017Q2

REPORT INFORMATION
  Report Type: Spontaneous
  Country: US (occurrence: US)
  Receive Date: 20170512
  Receipt Date: 20170616
  Transmission Date: 20170830
  Serious: Yes (Death, Hospitalization)
  Sender: FDA-Public Use
  Company Number: US-TAIHO ONCOLOGY INC-EU-2017-00743

PATIENT
  Age: 58 Year
  Sex: Male
  Weight: 125.3 kg

DRUGS (21)
  1. LONSURF [Suspect]
     Active Substance: TIPIRACIL HYDROCHLORIDE\TRIFLURIDINE
     Indication: COLON CANCER METASTATIC
     Route: 048
     Dates: start: 20170316
  2. DIGOXIN. [Concomitant]
     Active Substance: DIGOXIN
     Dates: start: 20170109
  3. REMERON [Concomitant]
     Active Substance: MIRTAZAPINE
     Dosage: 1/2 PILL BEFORE BEDTIME
     Route: 048
     Dates: start: 20170315
  4. CARVEDILOL. [Concomitant]
     Active Substance: CARVEDILOL
     Dosage: WITH FOOD
     Route: 048
     Dates: start: 20161228, end: 20170320
  5. COMPAZINE [Concomitant]
     Active Substance: PROCHLORPERAZINE MALEATE
     Route: 048
     Dates: start: 20160505
  6. XELODA [Concomitant]
     Active Substance: CAPECITABINE
     Indication: COLON CANCER METASTATIC
     Dosage: TWO WEEKS ON THEN ONE WEEK OFF
     Route: 048
     Dates: start: 20160526
  7. GABAPENTIN. [Concomitant]
     Active Substance: GABAPENTIN
     Dosage: AT BEDTIMES
     Route: 048
     Dates: start: 20161130
  8. TRAMADOL. [Concomitant]
     Active Substance: TRAMADOL
     Dosage: AS NEEDED
     Route: 048
     Dates: start: 20170104
  9. COLLAGENASE SANTYL [Concomitant]
     Active Substance: COLLAGENASE CLOSTRIDIUM HISTOLYTICUM
     Route: 061
  10. STIVARGA [Concomitant]
     Active Substance: REGORAFENIB
     Dosage: SAME TIME EACH DAY
     Route: 048
     Dates: start: 20161121
  11. ZOFRAN [Concomitant]
     Active Substance: ONDANSETRON HYDROCHLORIDE
     Route: 048
     Dates: start: 20161228
  12. BUMEX [Concomitant]
     Active Substance: BUMETANIDE
     Route: 042
  13. CLONAZEPAM. [Concomitant]
     Active Substance: CLONAZEPAM
     Route: 048
     Dates: start: 20160922
  14. LASIX [Concomitant]
     Active Substance: FUROSEMIDE
     Route: 048
     Dates: start: 20170220, end: 20170317
  15. OXYCODONE [Concomitant]
     Active Substance: OXYCODONE
     Dosage: 1 EVERY 4-6 HOURS
     Route: 048
     Dates: start: 20170216
  16. RAMIPRIL. [Concomitant]
     Active Substance: RAMIPRIL
     Route: 048
     Dates: start: 20170307
  17. TIZANIDINE. [Concomitant]
     Active Substance: TIZANIDINE
     Indication: MYALGIA
     Dosage: PRN
     Route: 048
     Dates: start: 20170220
  18. VENTOLIN HFA [Concomitant]
     Active Substance: ALBUTEROL SULFATE
     Dosage: 2 PUFFS EVERY 4-6 HRS AS NEEDED
     Dates: start: 20161222
  19. ZOLPIDEM [Concomitant]
     Active Substance: ZOLPIDEM\ZOLPIDEM TARTRATE
     Dosage: AT BEDTIME
     Route: 048
     Dates: start: 20161226, end: 20170321
  20. SERTRALINE [Concomitant]
     Active Substance: SERTRALINE HYDROCHLORIDE
     Dosage: NI
  21. ESCITALOPRAM [Concomitant]
     Active Substance: ESCITALOPRAM OXALATE
     Route: 048
     Dates: start: 20170220, end: 20170315

REACTIONS (20)
  - Disease progression [Fatal]
  - Melaena [Unknown]
  - Pain in extremity [Unknown]
  - Pathological fracture [Fatal]
  - Hypernatraemia [Fatal]
  - Chronic kidney disease [Unknown]
  - Decubitus ulcer [Unknown]
  - Blood creatinine increased [Unknown]
  - Renal impairment [Unknown]
  - Fall [Unknown]
  - Pain in extremity [Unknown]
  - Urinary incontinence [Unknown]
  - Hypophagia [Unknown]
  - Asthenia [Unknown]
  - Anal incontinence [Unknown]
  - Acute kidney injury [Fatal]
  - Encephalopathy [Fatal]
  - Gastrointestinal haemorrhage [Unknown]
  - Cardiac failure congestive [Unknown]
  - Liver disorder [Unknown]

NARRATIVE: CASE EVENT DATE: 2017
